FAERS Safety Report 19116910 (Version 3)
Quarter: 2021Q4

REPORT INFORMATION
  Report Type: Spontaneous
  Country: US (occurrence: US)
  Receive Date: 20210409
  Receipt Date: 20211022
  Transmission Date: 20220303
  Serious: No
  Sender: FDA-Public Use
  Company Number: US-BEH-2021129989

PATIENT
  Sex: Female

DRUGS (3)
  1. HIZENTRA [Suspect]
     Active Substance: HUMAN IMMUNOGLOBULIN G
     Indication: Immunodeficiency common variable
     Dosage: 20 GRAM, QOW (EVERY TWO WEEKS)
     Route: 058
     Dates: start: 20200807
  2. HIZENTRA [Suspect]
     Active Substance: HUMAN IMMUNOGLOBULIN G
     Dosage: 20 GRAM, QOW (EVERY TWO WEEKS)
     Route: 058
     Dates: start: 202007
  3. HIZENTRA [Suspect]
     Active Substance: HUMAN IMMUNOGLOBULIN G
     Dosage: 20 GRAM, QOW
     Route: 058
     Dates: start: 202008

REACTIONS (5)
  - Injection site swelling [Unknown]
  - Injection site discomfort [Unknown]
  - Injection site reaction [Unknown]
  - Recalled product administered [Unknown]
  - Urticaria [Unknown]
